FAERS Safety Report 15261239 (Version 4)
Quarter: 2022Q1

REPORT INFORMATION
  Report Type: Report from Study
  Country: US (occurrence: US)
  Receive Date: 20180809
  Receipt Date: 20220204
  Transmission Date: 20220424
  Serious: Yes (Hospitalization, Disabling, Other)
  Sender: FDA-Public Use
  Company Number: US-SHIRE-US201830278

PATIENT

DRUGS (17)
  1. ONCASPAR [Suspect]
     Active Substance: PEGASPARGASE
     Indication: Acute lymphocytic leukaemia
     Dosage: 6175 IU, UNK
     Route: 042
     Dates: start: 20180103
  2. ONCASPAR [Suspect]
     Active Substance: PEGASPARGASE
     Dosage: 6175 IU, DAY 4
     Route: 042
     Dates: start: 20180621
  3. ONCASPAR [Suspect]
     Active Substance: PEGASPARGASE
     Dosage: 5625 IU, UNK
     Route: 042
     Dates: start: 20180821
  4. DOXORUBICIN [Suspect]
     Active Substance: DOXORUBICIN
     Indication: Acute lymphocytic leukaemia
     Dosage: 25 MG/M2, ON DAYS 1,8,15
     Route: 042
  5. DOXORUBICIN [Suspect]
     Active Substance: DOXORUBICIN
     Dosage: 62 MG, UNK
     Route: 042
     Dates: start: 20180618
  6. METHOTREXATE [Suspect]
     Active Substance: METHOTREXATE
     Indication: Acute lymphocytic leukaemia
     Dosage: 15 UNK, UNK
     Route: 037
     Dates: start: 20171219
  7. METHOTREXATE [Suspect]
     Active Substance: METHOTREXATE
     Dosage: 15 MG, DAY 1
     Route: 037
     Dates: start: 20180618
  8. DEXAMETHASONE [Suspect]
     Active Substance: DEXAMETHASONE
     Indication: Acute lymphocytic leukaemia
     Dosage: 5 MG/M2, 2X/DAY:BID
     Route: 048
     Dates: start: 20180618
  9. VINCRISTINE [Suspect]
     Active Substance: VINCRISTINE
     Indication: Acute lymphocytic leukaemia
     Dosage: 2 MG, ON DAYS 1, 8, 15
     Route: 042
     Dates: start: 20180103, end: 20180625
  10. VINCRISTINE [Suspect]
     Active Substance: VINCRISTINE
     Dosage: 2 MG, UNK
     Route: 042
     Dates: start: 20180626
  11. RUXOLITINIB [Suspect]
     Active Substance: RUXOLITINIB
     Indication: Acute lymphocytic leukaemia
     Dosage: 80 MG, 2X/DAY:BID
     Route: 048
     Dates: start: 20171219, end: 20180625
  12. RUXOLITINIB [Suspect]
     Active Substance: RUXOLITINIB
     Dosage: 80 MG, 2X/DAY:BID
     Route: 048
     Dates: start: 20180807
  13. RIVAROXABAN [Concomitant]
     Active Substance: RIVAROXABAN
     Indication: Product used for unknown indication
  14. CHOLECALCIFEROL [Concomitant]
     Active Substance: CHOLECALCIFEROL
     Indication: Product used for unknown indication
  15. BACTRIM DS [Concomitant]
     Active Substance: SULFAMETHOXAZOLE\TRIMETHOPRIM
     Indication: Product used for unknown indication
  16. AMLODIPINE [Concomitant]
     Active Substance: AMLODIPINE BESYLATE
     Indication: Product used for unknown indication
  17. LEVOCARNITINE [Concomitant]
     Active Substance: LEVOCARNITINE
     Indication: Product used for unknown indication

REACTIONS (9)
  - Parainfluenzae virus infection [Recovered/Resolved]
  - Escherichia bacteraemia [Recovered/Resolved]
  - Myositis [Recovered/Resolved]
  - Bronchopulmonary aspergillosis [Recovered/Resolved]
  - Cellulitis [Recovered/Resolved]
  - Pneumonia [Recovered/Resolved]
  - Septic shock [Recovered/Resolved]
  - Febrile neutropenia [Recovered/Resolved]
  - Hyperglycaemia [Recovered/Resolved]

NARRATIVE: CASE EVENT DATE: 20180625
